FAERS Safety Report 14337793 (Version 3)
Quarter: 2018Q1

REPORT INFORMATION
  Report Type: Report from Study
  Country: US (occurrence: US)
  Receive Date: 20171229
  Receipt Date: 20180131
  Transmission Date: 20180509
  Serious: Yes (Hospitalization)
  Sender: FDA-Public Use
  Company Number: US-BAYER-2017-247470

PATIENT
  Age: 61 Year
  Sex: Female

DRUGS (2)
  1. STIVARGA [Suspect]
     Active Substance: REGORAFENIB
     Indication: COLORECTAL CANCER METASTATIC
     Dosage: 120 MG, QD (3 WEEKS ON 1 WEEK OFF)
     Route: 048
     Dates: start: 20171216, end: 20171219
  2. STIVARGA [Suspect]
     Active Substance: REGORAFENIB
     Indication: RECTAL CANCER
     Dosage: DAILY DOSE 80 MG  THREE WEEKS ON ONE WEEK OFF
     Route: 048
     Dates: start: 20180109, end: 20180113

REACTIONS (19)
  - Medical procedure [None]
  - Incoherent [None]
  - Dizziness [None]
  - Vertigo [None]
  - Large intestinal haemorrhage [None]
  - Exercise tolerance decreased [None]
  - Delusion [None]
  - Volume blood decreased [Recovering/Resolving]
  - Confusional state [None]
  - Liver function test increased [None]
  - Fatigue [Not Recovered/Not Resolved]
  - Pneumonia [None]
  - Loss of personal independence in daily activities [None]
  - Dysphonia [None]
  - Dry throat [None]
  - Off label use [None]
  - Dry mouth [None]
  - Nausea [None]
  - Cough [None]

NARRATIVE: CASE EVENT DATE: 20171219
